FAERS Safety Report 8505730-8 (Version None)
Quarter: 2012Q3

REPORT INFORMATION
  Report Type: 
  Country: None (occurrence: None)
  Receive Date: 20120712
  Receipt Date: 20120703
  Transmission Date: 20120928
  Serious: Yes (Other)
  Sender: FDA-Public Use
  Company Number: US-ASTRAZENECA-2012SE44691

PATIENT
  Age: 74 Year
  Sex: Male

DRUGS (2)
  1. NEXIUM [Concomitant]
  2. OMEPRAZOLE [Suspect]
     Route: 048

REACTIONS (4)
  - FAECAL INCONTINENCE [None]
  - PARALYSIS [None]
  - DRUG INEFFECTIVE [None]
  - GASTRIC DISORDER [None]
